FAERS Safety Report 25886601 (Version 1)
Quarter: 2025Q4

REPORT INFORMATION
  Report Type: Spontaneous
  Country: US (occurrence: US)
  Receive Date: 20251006
  Receipt Date: 20251006
  Transmission Date: 20260118
  Serious: Yes (Other)
  Sender: MYLAN
  Company Number: US-MYLANLABS-2025M1083790

PATIENT
  Sex: Female
  Weight: 57.15 kg

DRUGS (3)
  1. LEVOTHYROXINE SODIUM [Suspect]
     Active Substance: LEVOTHYROXINE SODIUM
     Indication: Product used for unknown indication
     Dosage: 75 MICROGRAM, AM
  2. ESTROGENS [Concomitant]
     Active Substance: ESTROGENS
     Dosage: UNK, QD
  3. ACYCLOVIR [Concomitant]
     Active Substance: ACYCLOVIR
     Dosage: UNK, QD

REACTIONS (5)
  - Graves^ disease [Unknown]
  - Alopecia [Unknown]
  - Visual impairment [Unknown]
  - Brain fog [Unknown]
  - Palpitations [Unknown]

NARRATIVE: CASE EVENT DATE: 20250101
